FAERS Safety Report 8156428-X (Version None)
Quarter: 2012Q1

REPORT INFORMATION
  Report Type: 
  Country: None (occurrence: None)
  Receive Date: 20120222
  Receipt Date: 20120215
  Transmission Date: 20120608
  Serious: Yes (Other)
  Sender: FDA-Public Use
  Company Number: US-JNJFOC-20100111196

PATIENT
  Age: 7 Year
  Sex: Male

DRUGS (6)
  1. ACETAMINOPHEN [Suspect]
     Route: 065
  2. JUNIOR STRENGTH MOTRIN [Suspect]
     Route: 065
  3. BENADRYL [Suspect]
     Indication: PRODUCT USED FOR UNKNOWN INDICATION
     Route: 065
  4. JUNIOR STRENGTH MOTRIN [Suspect]
     Indication: ILL-DEFINED DISORDER
     Route: 065
  5. ACETAMINOPHEN [Suspect]
     Indication: PRODUCT USED FOR UNKNOWN INDICATION
     Route: 065
  6. BENADRYL [Suspect]
     Route: 065

REACTIONS (14)
  - CHEST DISCOMFORT [None]
  - WHEEZING [None]
  - NAUSEA [None]
  - COUGH [None]
  - PYREXIA [None]
  - PALLOR [None]
  - HYPERSENSITIVITY [None]
  - URTICARIA [None]
  - MALAISE [None]
  - RASH [None]
  - ANGIOEDEMA [None]
  - IMPAIRED WORK ABILITY [None]
  - HEADACHE [None]
  - PRODUCT QUALITY ISSUE [None]
